FAERS Safety Report 10412675 (Version 1)
Quarter: 2014Q3

REPORT INFORMATION
  Report Type: Report from Study
  Country: US (occurrence: US)
  Receive Date: 20140827
  Receipt Date: 20140827
  Transmission Date: 20150326
  Serious: Yes (Hospitalization)
  Sender: FDA-Public Use
  Company Number: US-ACTAVIS-2014-18610

PATIENT
  Age: 25 Year
  Sex: Male
  Weight: 84 kg

DRUGS (3)
  1. FLUDARABINE PHOSPHATE (ATLLC) [Suspect]
     Active Substance: FLUDARABINE PHOSPHATE
     Indication: ACUTE LYMPHOCYTIC LEUKAEMIA
     Dosage: 59 MG, DAYS 2-6, 4 WEEK CYCLE
     Route: 042
     Dates: start: 20140521, end: 20140526
  2. CYTARABINE. [Suspect]
     Active Substance: CYTARABINE
     Indication: ACUTE LYMPHOCYTIC LEUKAEMIA
     Dosage: 4000MG, DAYS 1-6, 4 WEEK CYCLE
     Route: 042
     Dates: start: 20140520, end: 20140526
  3. FILGRASTIM [Suspect]
     Active Substance: FILGRASTIM
     Indication: ACUTE LYMPHOCYTIC LEUKAEMIA
     Dosage: 480 MCG, DAILY
     Route: 058
     Dates: start: 20140528

REACTIONS (3)
  - Proctalgia [Recovering/Resolving]
  - Condition aggravated [Recovering/Resolving]
  - Anogenital warts [Recovering/Resolving]

NARRATIVE: CASE EVENT DATE: 20140528
